FAERS Safety Report 10264593 (Version 4)
Quarter: 2014Q3

REPORT INFORMATION
  Report Type: Report from Study
  Country: NO (occurrence: NO)
  Receive Date: 20140627
  Receipt Date: 20140929
  Transmission Date: 20150326
  Serious: Yes (Congenital Anomaly)
  Sender: FDA-Public Use
  Company Number: PHHY2014NO033344

PATIENT
  Age: 34 Year
  Sex: Female
  Weight: 77 kg

DRUGS (2)
  1. LDK378 [Suspect]
     Active Substance: CERITINIB
     Dosage: 750 MG, QD
     Route: 048
     Dates: start: 20140321
  2. LDK378 [Suspect]
     Active Substance: CERITINIB
     Indication: LUNG ADENOCARCINOMA
     Dosage: 750 MG, QD
     Route: 048
     Dates: start: 20131104, end: 20140317

REACTIONS (2)
  - Blighted ovum [Recovered/Resolved]
  - Maternal exposure during pregnancy [Unknown]

NARRATIVE: CASE EVENT DATE: 20140318
